FAERS Safety Report 7757086-6 (Version None)
Quarter: 2011Q3

REPORT INFORMATION
  Report Type: 
  Country: None (occurrence: None)
  Receive Date: 20110916
  Receipt Date: 20110907
  Transmission Date: 20111222
  Serious: Yes (Hospitalization, Other)
  Sender: FDA-Public Use
  Company Number: FR-NAPPMUNDI-GBR-2011-0007710

PATIENT
  Age: 78 Year
  Sex: Female
  Weight: 68 kg

DRUGS (11)
  1. NEXIUM [Concomitant]
     Dosage: UNK
     Dates: start: 20100101, end: 20110101
  2. MORPHINE SULFATE [Suspect]
     Indication: PRODUCT USED FOR UNKNOWN INDICATION
     Dosage: UNK
     Dates: start: 20040101, end: 20090101
  3. OXYCODONE HCL [Suspect]
     Indication: PAIN
     Dosage: UNK UNK, UNK
  4. NEURONTIN [Suspect]
     Indication: PRODUCT USED FOR UNKNOWN INDICATION
     Dosage: UNK
     Route: 048
     Dates: start: 20040101, end: 20090101
  5. ARIXTRA [Concomitant]
     Indication: THROMBOSIS PROPHYLAXIS
     Dosage: UNK
     Dates: start: 20100101, end: 20110101
  6. CELEBREX [Concomitant]
     Dosage: UNK
     Dates: start: 20100101, end: 20110101
  7. OXYCONTIN [Suspect]
     Indication: PAIN
     Dosage: UNK UNK, UNK
     Route: 048
     Dates: start: 20100101, end: 20110101
  8. MORPHINE SULFATE [Suspect]
     Indication: PAIN
     Dosage: 30 MG, UNK
     Route: 048
     Dates: start: 20040101, end: 20090101
  9. OXYCONTIN [Suspect]
     Dosage: UNK UNK, UNK
     Route: 048
     Dates: start: 20040101, end: 20090101
  10. ASPIRIN [Concomitant]
     Dosage: UNK
     Dates: start: 20100101, end: 20110101
  11. LOVENOX [Concomitant]
     Dosage: UNK
     Dates: start: 20040101, end: 20090101

REACTIONS (3)
  - URINARY INCONTINENCE [None]
  - UTERINE ENLARGEMENT [None]
  - METRORRHAGIA [None]
